FAERS Safety Report 7533645-0 (Version None)
Quarter: 2011Q2

REPORT INFORMATION
  Report Type: 
  Country: None (occurrence: None)
  Receive Date: 20110608
  Receipt Date: 20060328
  Transmission Date: 20111010
  Serious: Yes (Death)
  Sender: FDA-Public Use
  Company Number: PHHO2006KR05100

PATIENT
  Sex: Male
  Weight: 60 kg

DRUGS (1)
  1. CLOZAPINE [Suspect]
     Dosage: 500 MG, DAILY
     Route: 048
     Dates: start: 20050115

REACTIONS (2)
  - PLEURAL EFFUSION [None]
  - PNEUMONIA [None]
